FAERS Safety Report 18332124 (Version 2)
Quarter: 2020Q4

REPORT INFORMATION
  Report Type: Report from Study
  Country: KR (occurrence: KR)
  Receive Date: 20201001
  Receipt Date: 20201026
  Transmission Date: 20210113
  Serious: Yes (Death, Hospitalization)
  Sender: FDA-Public Use
  Company Number: KR-ROCHE-2687100

PATIENT
  Age: 63 Year
  Sex: Male
  Weight: 64.9 kg

DRUGS (6)
  1. LEFOCIN [Concomitant]
     Dosage: 500 MG/BTL
     Dates: start: 20200929, end: 20201003
  2. CRAVIT [Concomitant]
     Active Substance: LEVOFLOXACIN
     Dosage: 750 MG/BTL
     Dates: start: 20200925, end: 20200927
  3. TAZOPERAN [Concomitant]
     Dosage: 9G/VIA
     Dates: start: 20200925, end: 20201017
  4. TEICONIN [Concomitant]
     Dosage: 400MG/VIA
     Dates: start: 20201010, end: 20201016
  5. ATEZOLIZUMAB. [Suspect]
     Active Substance: ATEZOLIZUMAB
     Indication: NON-SMALL CELL LUNG CANCER
     Dosage: DATE OF MOST RECENT DOSE OF ATEZOLIZUMAB PRIOR TO SAE ONSET: 10/SEP/2020?ATEZOLIZUMAB STOOPED: 27/SE
     Route: 041
     Dates: start: 20200615
  6. TAZOPERAN [Concomitant]
     Dosage: 18G/VIA
     Dates: start: 20201014, end: 20201017

REACTIONS (1)
  - Pneumocystis jirovecii pneumonia [Recovering/Resolving]

NARRATIVE: CASE EVENT DATE: 20200926
